FAERS Safety Report 5088504-2 (Version None)
Quarter: 2006Q3

REPORT INFORMATION
  Report Type: 
  Country: None (occurrence: None)
  Receive Date: 20060822
  Receipt Date: 20060808
  Transmission Date: 20061208
  Serious: Yes (Hospitalization, Other)
  Sender: FDA-Public Use
  Company Number: 2006AL002229

PATIENT
  Age: 81 Year
  Sex: Female

DRUGS (6)
  1. METFORMIN HYDROCHLORIDE [Suspect]
     Indication: DIABETES MELLITUS
     Dosage: 500 MG;BID;PO
     Route: 048
     Dates: start: 20060516, end: 20060605
  2. GLICLAZIDE [Concomitant]
  3. AMITRIPTYLINE HCL [Concomitant]
  4. PERINDOPRIL ERBUMINE [Concomitant]
  5. SIMVASTATIN [Concomitant]
  6. SYMBICORT [Concomitant]

REACTIONS (2)
  - CIRCULATORY COLLAPSE [None]
  - HYPOGLYCAEMIA [None]
